FAERS Safety Report 4307790-7 (Version None)
Quarter: 2004Q1

REPORT INFORMATION
  Report Type: 
  Country: None (occurrence: None)
  Receive Date: 20040225
  Receipt Date: 20030619
  Transmission Date: 20041129
  Serious: Yes (Hospitalization, Disabling)
  Sender: FDA-Public Use
  Company Number: WAES 0306USA02409

PATIENT
  Sex: Female

DRUGS (4)
  1. ZOCOR [Suspect]
     Indication: BLOOD CHOLESTEROL INCREASED
     Dosage: 80 MG/DAILY/PO
     Route: 048
     Dates: end: 20021128
  2. GEMFIBROZIL [Concomitant]
  3. PLENDIL [Concomitant]
  4. ATENOLOL [Concomitant]

REACTIONS (3)
  - ASTHENIA [None]
  - DRUG INTERACTION [None]
  - MYALGIA [None]
